FAERS Safety Report 14834212 (Version 3)
Quarter: 2018Q3

REPORT INFORMATION
  Report Type: Spontaneous
  Country: US (occurrence: US)
  Receive Date: 20180501
  Receipt Date: 20180911
  Transmission Date: 20181010
  Serious: Yes (Other)
  Sender: FDA-Public Use
  Company Number: US-AKORN PHARMACEUTICALS-2018AKN00538

PATIENT
  Age: 19 Year
  Sex: Female

DRUGS (2)
  1. INTRAUTERINE DEVICE LNG20 (MIRENA OR PARAGARD T380A) [Concomitant]
  2. MYORISAN [Suspect]
     Active Substance: ISOTRETINOIN
     Dosage: 80 MG, 2X/DAY; ^AVERAGE DAILY DOSE^
     Dates: start: 20170922, end: 20180419

REACTIONS (2)
  - Exposure during pregnancy [Recovered/Resolved]
  - Abortion induced [Recovered/Resolved]

NARRATIVE: CASE EVENT DATE: 20180402
